FAERS Safety Report 21972249 (Version 1)
Quarter: 2023Q1

REPORT INFORMATION
  Report Type: Spontaneous
  Country: QA (occurrence: QA)
  Receive Date: 20230209
  Receipt Date: 20230209
  Transmission Date: 20230418
  Serious: Yes (Other)
  Sender: FDA-Public Use
  Company Number: QA-UCBSA-2023006625

PATIENT
  Sex: Female
  Weight: 2.495 kg

DRUGS (20)
  1. LEVETIRACETAM [Suspect]
     Active Substance: LEVETIRACETAM
     Indication: Seizure
     Dosage: 40 MILLIGRAM/KILOGRAM, LOADING DOSE
  2. LEVETIRACETAM [Suspect]
     Active Substance: LEVETIRACETAM
     Dosage: 40 MILLIGRAM/KILOGRAM, 2X/DAY (BID),  MAINTAINANCE DOSE
  3. LEVETIRACETAM [Suspect]
     Active Substance: LEVETIRACETAM
     Dosage: 50 MILLIGRAM/KILOGRAM, ONCE DAILY (QD)
  4. LEVETIRACETAM [Suspect]
     Active Substance: LEVETIRACETAM
     Dosage: 60 MILLIGRAM/KILOGRAM, ONCE DAILY (QD)
  5. PHENOBARBITAL [Suspect]
     Active Substance: PHENOBARBITAL
     Indication: Seizure
     Dosage: 10 MILLIGRAM/KILOGRAM
  6. PHENOBARBITAL [Suspect]
     Active Substance: PHENOBARBITAL
     Dosage: 7 MILLIGRAM/KILOGRAM, ONCE DAILY (QD)
  7. PHENOBARBITAL [Suspect]
     Active Substance: PHENOBARBITAL
     Dosage: 5 MILLIGRAM/KILOGRAM, ONCE DAILY (QD)
  8. AMIKACIN [Concomitant]
     Active Substance: AMIKACIN
     Indication: Product used for unknown indication
     Dosage: UNK
  9. AMPICILLIN [Concomitant]
     Active Substance: AMPICILLIN
     Indication: Product used for unknown indication
  10. CLOBAZAM [Concomitant]
     Active Substance: CLOBAZAM
     Indication: Product used for unknown indication
     Dosage: 0.75 MILLIGRAM/KILOGRAM, ONCE DAILY (QD)
  11. CLOBAZAM [Concomitant]
     Active Substance: CLOBAZAM
     Dosage: 1 MILLIGRAM/KILOGRAM, ONCE DAILY (QD)
  12. CLOBAZAM [Concomitant]
     Active Substance: CLOBAZAM
     Dosage: 1.7 MILLIGRAM/KILOGRAM, ONCE DAILY (QD)
  13. DEXTROSE [Concomitant]
     Active Substance: DEXTROSE
     Indication: Blood glucose
     Dosage: 1 MILLILITER
  14. PHENYTOIN [Concomitant]
     Active Substance: PHENYTOIN
     Indication: Seizure
     Dosage: 6.6 MILLIGRAM/KILOGRAM, ONCE DAILY (QD)
  15. TOPIRAMATE [Concomitant]
     Active Substance: TOPIRAMATE
     Indication: Product used for unknown indication
     Dosage: 10 MILLIGRAM/KILOGRAM
  16. TOPIRAMATE [Concomitant]
     Active Substance: TOPIRAMATE
     Dosage: 3 MILLIGRAM/KILOGRAM
  17. TOPIRAMATE [Concomitant]
     Active Substance: TOPIRAMATE
     Dosage: 5 MILLIGRAM/KILOGRAM, ONCE DAILY (QD)
  18. TOPIRAMATE [Concomitant]
     Active Substance: TOPIRAMATE
     Dosage: 7.5 MILLIGRAM/KILOGRAM, ONCE DAILY (QD)
  19. TOPIRAMATE [Concomitant]
     Active Substance: TOPIRAMATE
     Dosage: 9 MILLIGRAM/KILOGRAM, ONCE DAILY (QD)
  20. OXCARBAZEPINE [Concomitant]
     Active Substance: OXCARBAZEPINE
     Indication: Product used for unknown indication
     Dosage: UNK

REACTIONS (4)
  - Tardive dyskinesia [Unknown]
  - Eye movement disorder [Unknown]
  - Tachycardia [Unknown]
  - Drug ineffective [Unknown]
